FAERS Safety Report 14656898 (Version 1)
Quarter: 2018Q1

REPORT INFORMATION
  Report Type: Spontaneous
  Country: US (occurrence: US)
  Receive Date: 20180319
  Receipt Date: 20180319
  Transmission Date: 20180509
  Serious: No
  Sender: FDA-Public Use
  Company Number: US-SA-2017SA124598

PATIENT
  Age: 67 Year
  Sex: Female
  Weight: 52.61 kg

DRUGS (6)
  1. PANTHENOL/RETINOL/THIAMINE HYDROCHLORIDE/ASCORBIC ACID/ERGOCALCIFEROL/FOLIC ACID/RIBOFLAVIN/NICOTINA [Concomitant]
     Indication: PROPHYLAXIS
     Route: 065
  2. IBUPROFEN. [Concomitant]
     Active Substance: IBUPROFEN
     Indication: HEADACHE
     Route: 065
  3. BLACK COHOSH [Concomitant]
     Active Substance: BLACK COHOSH
     Indication: MENOPAUSE
     Route: 065
  4. NASACORT ALLERGY 24HR [Suspect]
     Active Substance: TRIAMCINOLONE ACETONIDE
     Indication: SEASONAL ALLERGY
     Dosage: 2 SPRAYS
     Route: 045
     Dates: start: 20170611, end: 20170630
  5. IBUPROFEN. [Concomitant]
     Active Substance: IBUPROFEN
     Indication: MYALGIA
     Route: 065
  6. CALCIUM [Concomitant]
     Active Substance: CALCIUM
     Indication: OSTEOPOROSIS
     Route: 065

REACTIONS (3)
  - Tenderness [Not Recovered/Not Resolved]
  - Administration site swelling [Recovered/Resolved]
  - Lip swelling [Recovered/Resolved]

NARRATIVE: CASE EVENT DATE: 20170630
